FAERS Safety Report 19635921 (Version 1)
Quarter: 2021Q3

REPORT INFORMATION
  Report Type: Spontaneous
  Country: US (occurrence: US)
  Receive Date: 20210730
  Receipt Date: 20210730
  Transmission Date: 20211014
  Serious: No
  Sender: FDA-Public Use
  Company Number: US-ASTRAZENECA-2021A582470

PATIENT
  Sex: Female
  Weight: 104.3 kg

DRUGS (1)
  1. FARXIGA [Suspect]
     Active Substance: DAPAGLIFLOZIN PROPANEDIOL
     Indication: DIABETES MELLITUS
     Route: 048

REACTIONS (4)
  - Pruritus [Not Recovered/Not Resolved]
  - Vulvovaginal mycotic infection [Not Recovered/Not Resolved]
  - Ear infection fungal [Recovering/Resolving]
  - Hypersensitivity [Not Recovered/Not Resolved]
